FAERS Safety Report 21399482 (Version 1)
Quarter: 2022Q4

REPORT INFORMATION
  Report Type: Report from Study
  Country: US (occurrence: US)
  Receive Date: 20221001
  Receipt Date: 20221001
  Transmission Date: 20230113
  Serious: Yes (Hospitalization)
  Sender: FDA-Public Use
  Company Number: US-NOVARTISPH-NVSC2022US221516

PATIENT
  Sex: Male

DRUGS (1)
  1. ENTRESTO [Suspect]
     Active Substance: SACUBITRIL\VALSARTAN
     Indication: Cardiac failure
     Dosage: (49/51 MG) BID
     Route: 048

REACTIONS (4)
  - Fluid retention [Unknown]
  - Weight decreased [Unknown]
  - Alopecia [Recovered/Resolved]
  - Product dose omission issue [Unknown]
